FAERS Safety Report 14988609 (Version 4)
Quarter: 2019Q2

REPORT INFORMATION
  Report Type: Spontaneous
  Country: US (occurrence: US)
  Receive Date: 20180608
  Receipt Date: 20190409
  Transmission Date: 20190711
  Serious: No
  Sender: FDA-Public Use
  Company Number: US-PFIZER INC-2018231897

PATIENT
  Age: 82 Year
  Sex: Female

DRUGS (4)
  1. IMITREX [Suspect]
     Active Substance: SUMATRIPTAN SUCCINATE
     Dosage: UNK
  2. ASPIRIN (E.C.) [Suspect]
     Active Substance: ASPIRIN
     Dosage: UNK
  3. PREDNISONE. [Suspect]
     Active Substance: PREDNISONE
     Dosage: UNK
  4. CELEBREX [Suspect]
     Active Substance: CELECOXIB
     Dosage: UNK

REACTIONS (1)
  - Drug hypersensitivity [Unknown]
